FAERS Safety Report 12195052 (Version 1)
Quarter: 2016Q1

REPORT INFORMATION
  Report Type: Spontaneous
  Country: US (occurrence: US)
  Receive Date: 20160321
  Receipt Date: 20160321
  Transmission Date: 20160526
  Serious: Yes (Other)
  Sender: FDA-Public Use
  Company Number: US-BAYER-2016-051453

PATIENT
  Age: 69 Year
  Sex: Female
  Weight: 64.4 kg

DRUGS (1)
  1. COPPERTONE SPORT SPF 30 SPRAY [Suspect]
     Active Substance: AVOBENZONE\HOMOSALATE\OCTISALATE\OCTOCRYLENE\OXYBENZONE
     Dosage: 1 DF, UNK
     Route: 061
     Dates: start: 20160313

REACTIONS (9)
  - Swelling face [Not Recovered/Not Resolved]
  - Oral discomfort [None]
  - Erythema [None]
  - Lip swelling [Not Recovered/Not Resolved]
  - Feeling hot [Not Recovered/Not Resolved]
  - Burning sensation [Not Recovered/Not Resolved]
  - Skin warm [None]
  - Oral discomfort [Not Recovered/Not Resolved]
  - Dry skin [None]

NARRATIVE: CASE EVENT DATE: 20160314
